FAERS Safety Report 6329991-9 (Version None)
Quarter: 2009Q3

REPORT INFORMATION
  Report Type: 
  Country: None (occurrence: None)
  Receive Date: 20090825
  Receipt Date: 20090817
  Transmission Date: 20100115
  Serious: Yes (Death, Life-Threatening, Hospitalization, Other)
  Sender: FDA-Public Use
  Company Number: 2009JP001087

PATIENT
  Age: 78 Year
  Sex: Female
  Weight: 50 kg

DRUGS (11)
  1. PROGRAF [Suspect]
     Indication: RHEUMATOID ARTHRITIS
     Dosage: 1.5 MG, UID/QD, ORAL
     Route: 048
  2. H2 BLOCKER (CIMETIDINE) [Concomitant]
  3. PREDNISOLONE [Concomitant]
  4. ETODOLAC [Concomitant]
  5. OMEPRAL [Concomitant]
  6. ONEALFA (ALFACALCIDOL) [Concomitant]
  7. CIPROFLOXACIN HCL [Concomitant]
  8. DALACIN INJECTION [Concomitant]
  9. LEVOFLOXACIN [Concomitant]
  10. ANTIFLATULENTS [Concomitant]
  11. SOL MEDROL (METHLYPREDNISOLONE, SUCCINATE SODIUM)\ [Concomitant]

REACTIONS (10)
  - ACTIVITIES OF DAILY LIVING IMPAIRED [None]
  - CARDIAC AMYLOIDOSIS [None]
  - CARDIAC FAILURE ACUTE [None]
  - DIARRHOEA [None]
  - FALL [None]
  - HAEMOPHILUS INFECTION [None]
  - INTERSTITIAL LUNG DISEASE [None]
  - NO THERAPEUTIC RESPONSE [None]
  - PNEUMONIA BACTERIAL [None]
  - VENTRICULAR TACHYCARDIA [None]
